FAERS Safety Report 24694954 (Version 1)
Quarter: 2024Q4

REPORT INFORMATION
  Report Type: Spontaneous
  Country: US (occurrence: None)
  Receive Date: 20241203
  Receipt Date: 20241203
  Transmission Date: 20250115
  Serious: Yes (Death)
  Sender: Public
  Company Number: None

PATIENT
  Age: 57 Year
  Sex: Female
  Weight: 61.23 kg

DRUGS (1)
  1. TAVNEOS [Suspect]
     Active Substance: AVACOPAN
     Indication: Granulomatosis with polyangiitis
     Dosage: FREQUENCY : TWICE A DAY;?
     Dates: start: 20230726

REACTIONS (1)
  - Death [None]
